FAERS Safety Report 6631363-4 (Version None)
Quarter: 2010Q1

REPORT INFORMATION
  Report Type: 
  Country: None (occurrence: None)
  Receive Date: 20100312
  Receipt Date: 20100301
  Transmission Date: 20100710
  Serious: Yes (Hospitalization)
  Sender: FDA-Public Use
  Company Number: US-JNJFOC-20091204359

PATIENT
  Sex: Female
  Weight: 46.72 kg

DRUGS (9)
  1. REMICADE [Suspect]
     Indication: CROHN'S DISEASE
     Route: 042
     Dates: start: 20060101, end: 20070101
  2. CIPRO [Concomitant]
  3. CORTISONE [Concomitant]
  4. BENTYL [Concomitant]
  5. PERCOCET [Concomitant]
     Indication: PAIN
  6. IRON [Concomitant]
  7. ALL OTHER THERAPEUTIC PRODUCTS [Concomitant]
  8. FLAGYL [Concomitant]
  9. ALL OTHER THERAPEUTIC PRODUCTS [Concomitant]

REACTIONS (10)
  - CHOLECYSTECTOMY [None]
  - DEHYDRATION [None]
  - FALL [None]
  - HIGH FREQUENCY ABLATION [None]
  - HYSTERECTOMY [None]
  - JOINT INJURY [None]
  - LOSS OF CONSCIOUSNESS [None]
  - MALNUTRITION [None]
  - THIRST [None]
  - VOMITING [None]
